FAERS Safety Report 19822191 (Version 3)
Quarter: 2022Q1

REPORT INFORMATION
  Report Type: Spontaneous
  Country: US (occurrence: US)
  Receive Date: 20210913
  Receipt Date: 20220314
  Transmission Date: 20220423
  Serious: No
  Sender: FDA-Public Use
  Company Number: US-GLOBAL BLOOD THERAPEUTICS INC-US-GBT-21-02380

PATIENT
  Sex: Female

DRUGS (12)
  1. OXBRYTA [Suspect]
     Active Substance: VOXELOTOR
     Indication: Sickle cell disease
     Route: 048
     Dates: start: 20210629, end: 20210705
  2. OXBRYTA [Suspect]
     Active Substance: VOXELOTOR
     Indication: Sickle cell disease
     Route: 048
     Dates: start: 20210706, end: 20210926
  3. OXBRYTA [Suspect]
     Active Substance: VOXELOTOR
     Route: 048
     Dates: start: 20210927, end: 20210929
  4. OXBRYTA [Suspect]
     Active Substance: VOXELOTOR
     Route: 048
     Dates: start: 20210930
  5. OXBRYTA [Suspect]
     Active Substance: VOXELOTOR
     Route: 048
  6. OXBRYTA [Suspect]
     Active Substance: VOXELOTOR
     Route: 048
  7. LISINOPRIL [Concomitant]
     Active Substance: LISINOPRIL
     Indication: Product used for unknown indication
     Dosage: NOT PROVIDED
  8. LEVOTHYROXINE [Concomitant]
     Active Substance: LEVOTHYROXINE
     Indication: Product used for unknown indication
     Dosage: NOT PROVIDED
  9. ESCITALOPRAM [Concomitant]
     Active Substance: ESCITALOPRAM OXALATE
     Indication: Product used for unknown indication
     Dosage: NOT PROVIDED
  10. ALENDRONATE SODIUM [Concomitant]
     Active Substance: ALENDRONATE SODIUM
     Indication: Product used for unknown indication
     Dosage: NOT PROVIDED
  11. HYDROXYUREA [Concomitant]
     Active Substance: HYDROXYUREA
     Indication: Product used for unknown indication
     Dosage: NOT PROVIDED
  12. GENERAL VITAMINS WITH D, C AND FOLIC ACID [Concomitant]
     Indication: Product used for unknown indication
     Dosage: NOT PROVIDED

REACTIONS (11)
  - Joint swelling [Recovering/Resolving]
  - Sickle cell anaemia with crisis [Recovering/Resolving]
  - Arthralgia [Recovered/Resolved]
  - Gastroenteritis viral [Recovered/Resolved]
  - Constipation [Recovered/Resolved]
  - Fatigue [Unknown]
  - Abdominal discomfort [Unknown]
  - Nausea [Recovered/Resolved]
  - Diarrhoea [Recovered/Resolved]
  - Abdominal pain upper [Recovered/Resolved]
  - Malaise [Recovered/Resolved]

NARRATIVE: CASE EVENT DATE: 20210101
